FAERS Safety Report 7239636 (Version 4)
Quarter: 2013Q4

REPORT INFORMATION
  Report Type: Spontaneous
  Country: None (occurrence: JP)
  Receive Date: 20100107
  Receipt Date: 20131212
  Transmission Date: 20140711
  Serious: Yes (Hospitalization, Disabling, Other)
  Sender: FDA-Public Use
  Company Number: JP-BAXTER-2009BH019966

PATIENT
  Age: 15 Year
  Sex: Female

DRUGS (12)
  1. IFEX (IFOSFAMIDE FOR INJECTION, USP) [Suspect]
     Indication: RHABDOMYOSARCOMA
     Route: 041
     Dates: start: 20091109, end: 20091113
  2. CELLTOP_ETOPOSIDE 20.00 MG/ML_SOLUTION FOR INJECTION_VIAL, GLASS [Suspect]
     Indication: RHABDOMYOSARCOMA
     Route: 042
     Dates: start: 20091109, end: 20091113
  3. VINCRISTINE SULFATE [Suspect]
     Indication: RHABDOMYOSARCOMA
     Route: 042
     Dates: start: 20091109, end: 20091109
  4. VINCRISTINE SULFATE [Suspect]
     Route: 042
     Dates: start: 20091116, end: 20091116
  5. COSMEGEN [Suspect]
     Indication: PRODUCT USED FOR UNKNOWN INDICATION
     Route: 041
     Dates: start: 20091109, end: 20091113
  6. MIDAZOLAM HYDROCHLORIDE [Suspect]
     Indication: ANTIEMETIC SUPPORTIVE CARE
     Route: 041
     Dates: start: 20091109, end: 20091119
  7. MIDAZOLAM HYDROCHLORIDE [Suspect]
     Route: 041
     Dates: start: 20091120, end: 20091130
  8. BROACT [Suspect]
     Indication: PYREXIA
     Route: 041
     Dates: start: 20091114, end: 20091119
  9. FUNGUARD [Suspect]
     Indication: PYREXIA
     Route: 041
     Dates: start: 20091114, end: 20091130
  10. NASEA [Concomitant]
     Indication: PROPHYLAXIS OF NAUSEA AND VOMITING
     Route: 042
     Dates: start: 20091109, end: 20091113
  11. UROMITEXAN 400 MG [Concomitant]
     Indication: CYSTITIS HAEMORRHAGIC
     Route: 042
     Dates: start: 20091109, end: 20091113
  12. VEEN 3G [Concomitant]
     Indication: CYSTITIS HAEMORRHAGIC
     Route: 041
     Dates: start: 20091108, end: 20091113

REACTIONS (8)
  - Rhabdomyolysis [Recovered/Resolved]
  - Altered state of consciousness [Unknown]
  - Urine output decreased [Unknown]
  - Respiratory failure [Unknown]
  - Disseminated intravascular coagulation [Recovered/Resolved]
  - Bacterial infection [Unknown]
  - Bone marrow failure [Unknown]
  - Pyrexia [Unknown]
